FAERS Safety Report 7823526-7 (Version None)
Quarter: 2011Q4

REPORT INFORMATION
  Report Type: 
  Country: None (occurrence: None)
  Receive Date: 20111019
  Receipt Date: 20111012
  Transmission Date: 20120403
  Serious: Yes (Other)
  Sender: FDA-Public Use
  Company Number: AT-AMGEN-AUTNI2011028059

PATIENT
  Age: 51 Year
  Sex: Female

DRUGS (3)
  1. NEULASTA [Suspect]
     Indication: NEUTROPENIA
     Dosage: 6 MG, UNK
  2. DEXAMETHASONE [Concomitant]
     Dosage: 40 MG, UNK
  3. ALEMTUZUMAB [Concomitant]
     Dosage: 30 MG, UNK

REACTIONS (4)
  - PYREXIA [None]
  - DYSPNOEA [None]
  - CYTOMEGALOVIRUS INFECTION [None]
  - CYSTITIS [None]
